FAERS Safety Report 8034559-2 (Version None)
Quarter: 2012Q1

REPORT INFORMATION
  Report Type: 
  Country: None (occurrence: None)
  Receive Date: 20120110
  Receipt Date: 20120104
  Transmission Date: 20120608
  Serious: Yes (Other)
  Sender: FDA-Public Use
  Company Number: US-ABBOTT-12P-163-0889112-00

PATIENT
  Sex: Female
  Weight: 52.664 kg

DRUGS (6)
  1. PREMARIN [Concomitant]
  2. HUMIRA [Suspect]
     Indication: ANKYLOSING SPONDYLITIS
     Route: 058
     Dates: start: 20100901, end: 20110101
  3. HUMIRA [Suspect]
     Indication: UVEITIS
     Route: 058
     Dates: start: 20120103
  4. HORMONES [Concomitant]
     Indication: HORMONE REPLACEMENT THERAPY
  5. PREDNISONE TAB [Concomitant]
  6. NEXIUM [Concomitant]

REACTIONS (5)
  - UVEITIS [None]
  - RESPIRATORY TRACT INFECTION [None]
  - NECK PAIN [None]
  - MOBILITY DECREASED [None]
  - OFF LABEL USE [None]
